FAERS Safety Report 16970957 (Version 1)
Quarter: 2019Q4

REPORT INFORMATION
  Report Type: Spontaneous
  Country: US (occurrence: US)
  Receive Date: 20191028
  Receipt Date: 20191028
  Transmission Date: 20200122
  Serious: Yes (Death)
  Sender: FDA-Public Use
  Company Number: None

PATIENT
  Age: 77 Year
  Sex: Female

DRUGS (15)
  1. AMOX/K CLAV [Concomitant]
     Active Substance: AMOXICILLIN\CLAVULANATE POTASSIUM
  2. NYSTATIN. [Concomitant]
     Active Substance: NYSTATIN
  3. CLARITIN-D NOS [Concomitant]
     Active Substance: LORATADINE\PSEUDOEPHEDRINE SULFATE
  4. ARANESP [Suspect]
     Active Substance: DARBEPOETIN ALFA
     Indication: ANAEMIA
     Dosage: ?          OTHER FREQUENCY:ONCE A WEEK;?
     Route: 058
     Dates: start: 20190309
  5. DOXYCYC HYC [Concomitant]
  6. PREMARIN [Concomitant]
     Active Substance: ESTROGENS, CONJUGATED
  7. TRAMADOL. [Concomitant]
     Active Substance: TRAMADOL
  8. VANCOMYCIN [Concomitant]
     Active Substance: VANCOMYCIN
  9. ACYCLOVIR. [Concomitant]
     Active Substance: ACYCLOVIR
  10. METRONIDAZOL [Concomitant]
     Active Substance: METRONIDAZOLE
  11. FLORANEX [Concomitant]
     Active Substance: LACTOBACILLUS ACIDOPHILUS\LACTOBACILLUS DELBRUECKII SUBSP. BULGARICUS
  12. LINEZOLID. [Concomitant]
     Active Substance: LINEZOLID
  13. HYDROCO/APAP [Concomitant]
     Active Substance: ACETAMINOPHEN\HYDROCODONE
  14. MAGNESIUM-OX [Concomitant]
  15. ONDANSETRON [Concomitant]
     Active Substance: ONDANSETRON

REACTIONS (1)
  - Death [None]
